FAERS Safety Report 18063793 (Version 2)
Quarter: 2021Q1

REPORT INFORMATION
  Report Type: Spontaneous
  Country: US (occurrence: US)
  Receive Date: 20200723
  Receipt Date: 20210331
  Transmission Date: 20210419
  Serious: Yes (Other)
  Sender: FDA-Public Use
  Company Number: US-TEVA-2020-US-1804949

PATIENT
  Age: 68 Year
  Sex: Female

DRUGS (3)
  1. VALSARTAN SOLCO [Suspect]
     Active Substance: VALSARTAN
     Route: 065
  2. VALSARTAN MYLAN [Suspect]
     Active Substance: VALSARTAN
     Route: 065
  3. VALSARTAN. [Suspect]
     Active Substance: VALSARTAN
     Route: 065

REACTIONS (1)
  - Endometrial cancer [Unknown]
